FAERS Safety Report 25665004 (Version 1)
Quarter: 2025Q3

REPORT INFORMATION
  Report Type: Spontaneous
  Country: US (occurrence: None)
  Receive Date: 20250809
  Receipt Date: 20250809
  Transmission Date: 20251020
  Serious: Yes (Hospitalization)
  Sender: FDA-CTU
  Company Number: None

PATIENT
  Age: 48 Year
  Sex: Male
  Weight: 75.3 kg

DRUGS (4)
  1. FLUOROURACIL [Suspect]
     Active Substance: FLUOROURACIL
  2. LEUCOVORIN CALCIUM [Suspect]
     Active Substance: LEUCOVORIN CALCIUM
  3. NIVOLUMAB [Suspect]
     Active Substance: NIVOLUMAB
  4. ELOXATIN [Suspect]
     Active Substance: OXALIPLATIN

REACTIONS (12)
  - Malaise [None]
  - Hyperhidrosis [None]
  - Loss of consciousness [None]
  - Fall [None]
  - Skin laceration [None]
  - Face injury [None]
  - Anaemia [None]
  - Syncope [None]
  - Tumour haemorrhage [None]
  - Red blood cell transfusion [None]
  - Platelet transfusion [None]
  - Transfusion [None]

NARRATIVE: CASE EVENT DATE: 20250728
